FAERS Safety Report 5003689-1 (Version None)
Quarter: 2006Q2

REPORT INFORMATION
  Report Type: 
  Country: None (occurrence: None)
  Receive Date: 20060516
  Receipt Date: 20060130
  Transmission Date: 20061013
  Serious: Yes (Hospitalization, Other)
  Sender: FDA-Public Use
  Company Number: US-MERCK-0602USA00085

PATIENT
  Age: 59 Year
  Sex: Male
  Weight: 100 kg

DRUGS (26)
  1. VIOXX [Suspect]
     Indication: OSTEOARTHRITIS
     Route: 048
     Dates: start: 19990710, end: 20040930
  2. NEURONTIN [Concomitant]
     Route: 065
     Dates: start: 19981230
  3. OXYCONTIN [Concomitant]
     Route: 065
     Dates: start: 19990123
  4. ACYCLOVIR [Concomitant]
     Route: 065
  5. ALLEGRA [Concomitant]
     Route: 065
  6. CEFADROXIL [Concomitant]
     Route: 065
  7. CEPHALEXIN [Concomitant]
     Route: 065
  8. CIMETIDINE [Concomitant]
     Route: 065
  9. CLONAZEPAM [Concomitant]
     Route: 065
  10. DIPHENHYDRAMINE HYDROCHLORIDE [Concomitant]
     Route: 065
  11. DUONEB [Concomitant]
     Route: 065
  12. FAMOTIDINE [Concomitant]
     Route: 065
  13. GUIATUSS [Concomitant]
     Route: 065
  14. HUMULIN [Concomitant]
     Route: 065
  15. HYDROCODONE BITARTRATE [Concomitant]
     Route: 065
  16. KLOR-CON [Concomitant]
     Route: 065
  17. KLOR-CON [Concomitant]
     Route: 065
  18. LORAZEPAM [Concomitant]
     Route: 065
  19. MEDROL [Concomitant]
     Route: 065
  20. METHYLPREDNISOLONE [Concomitant]
     Route: 065
  21. NYSTOP [Concomitant]
     Route: 065
  22. PATANOL [Concomitant]
     Route: 065
  23. PREDNISONE [Concomitant]
     Route: 065
  24. PREVIDENT 5000 PLUS [Concomitant]
     Route: 065
  25. PROCHLORPERAZINE [Concomitant]
     Route: 065
  26. SULFAMETHOXAZOLE [Concomitant]
     Route: 065

REACTIONS (9)
  - ADHESION [None]
  - ARTHROPATHY [None]
  - CARDIOVASCULAR DISORDER [None]
  - DEPRESSION [None]
  - DIABETES MELLITUS [None]
  - EPISTAXIS [None]
  - HEART RATE IRREGULAR [None]
  - HYPERTENSION [None]
  - MYOCARDIAL INFARCTION [None]
